FAERS Safety Report 8140803-3 (Version None)
Quarter: 2012Q1

REPORT INFORMATION
  Report Type: 
  Country: None (occurrence: None)
  Receive Date: 20120216
  Receipt Date: 20120206
  Transmission Date: 20120608
  Serious: Yes (Other)
  Sender: FDA-Public Use
  Company Number: JP-BRISTOL-MYERS SQUIBB COMPANY-16398737

PATIENT

DRUGS (3)
  1. REYATAZ [Suspect]
     Indication: HIV INFECTION
     Dosage: STARTED ON (05NOV09-02DEC09,03DEC09-27DEC10).
     Route: 064
     Dates: start: 20091105, end: 20101227
  2. NORVIR [Suspect]
     Indication: HIV INFECTION
     Route: 064
     Dates: start: 20091105, end: 20091202
  3. EPZICOM [Suspect]
     Indication: HIV INFECTION
     Route: 064
     Dates: start: 20091105, end: 20101227

REACTIONS (1)
  - PREMATURE BABY [None]
